FAERS Safety Report 5120441-7 (Version None)
Quarter: 2006Q4

REPORT INFORMATION
  Report Type: 
  Country: None (occurrence: None)
  Receive Date: 20061002
  Receipt Date: 20060915
  Transmission Date: 20070319
  Serious: Yes (Hospitalization)
  Sender: FDA-Public Use
  Company Number: DSA_28732_2006

PATIENT
  Age: 33 Year
  Sex: Female

DRUGS (2)
  1. LORAZEPAM [Suspect]
     Dosage: 40 MG ONCE PO
     Route: 048
     Dates: start: 20060914, end: 20060914
  2. PROMETHAZINE [Suspect]
     Dosage: 1000 MG ONCE PO
     Route: 048
     Dates: start: 20060914, end: 20060914

REACTIONS (2)
  - SOMNOLENCE [None]
  - TACHYCARDIA [None]
